FAERS Safety Report 6312094-7 (Version None)
Quarter: 2009Q3

REPORT INFORMATION
  Report Type: 
  Country: None (occurrence: None)
  Receive Date: 20090817
  Receipt Date: 20090811
  Transmission Date: 20100115
  Serious: Yes (Other)
  Sender: FDA-Public Use
  Company Number: GB-ASTRAZENECA-2009GB00765

PATIENT
  Age: 63 Year
  Sex: Female
  Weight: 95.3 kg

DRUGS (8)
  1. SEROQUEL [Suspect]
     Indication: SCHIZOAFFECTIVE DISORDER
     Route: 048
     Dates: start: 20070401
  2. SEROQUEL [Suspect]
     Route: 048
  3. ORPHENADRINE CITRATE [Concomitant]
  4. BISOPROLOL [Concomitant]
     Indication: CARDIAC DISORDER
  5. OMEPRAZOLE [Concomitant]
     Route: 065
  6. SIMVASTATIN [Concomitant]
     Dosage: 20 MG
  7. TELMISARTAN [Concomitant]
  8. ORLISTAT [Concomitant]

REACTIONS (1)
  - CONGESTIVE CARDIOMYOPATHY [None]
